FAERS Safety Report 4479801-X (Version None)
Quarter: 2004Q4

REPORT INFORMATION
  Report Type: 
  Country: None (occurrence: None)
  Receive Date: 20041019
  Receipt Date: 20041004
  Transmission Date: 20050328
  Serious: No
  Sender: FDA-Public Use
  Company Number: 2004AL000436

PATIENT
  Age: 11 Year
  Sex: Female

DRUGS (1)
  1. DOUBLE ANTIBIOTIC OINTMENT (POLYMIXIN B SULFATE-BACITRACIN ZINC) (ALPH [Suspect]

REACTIONS (1)
  - HYPERSENSITIVITY [None]
